FAERS Safety Report 24997665 (Version 1)
Quarter: 2025Q1

REPORT INFORMATION
  Report Type: Spontaneous
  Country: JP (occurrence: JP)
  Receive Date: 20250222
  Receipt Date: 20250222
  Transmission Date: 20250408
  Serious: Yes (Life-Threatening, Hospitalization)
  Sender: ABBVIE
  Company Number: JP-ABBVIE-6146044

PATIENT
  Age: 24 Year
  Sex: Male
  Weight: 73 kg

DRUGS (2)
  1. RINVOQ [Suspect]
     Active Substance: UPADACITINIB
     Indication: Dermatitis atopic
     Route: 048
     Dates: start: 202307, end: 202407
  2. CIBINQO [Suspect]
     Active Substance: ABROCITINIB
     Indication: Dermatitis atopic
     Route: 048
     Dates: start: 202407, end: 202502

REACTIONS (2)
  - Tuberculosis [Not Recovered/Not Resolved]
  - Cardiac tamponade [Unknown]

NARRATIVE: CASE EVENT DATE: 20240801
